FAERS Safety Report 9715920 (Version 1)
Quarter: 2013Q4

REPORT INFORMATION
  Report Type: Spontaneous
  Country: BG (occurrence: BG)
  Receive Date: 20131127
  Receipt Date: 20131127
  Transmission Date: 20140711
  Serious: Yes (Hospitalization, Other)
  Sender: FDA-Public Use
  Company Number: BG-ASTRAZENECA-2013SE85747

PATIENT
  Age: 56 Year
  Sex: Female

DRUGS (9)
  1. BETALOC ZOK [Suspect]
     Route: 048
  2. BETALOC ZOK [Suspect]
     Route: 048
  3. BETALOC ZOK [Suspect]
     Route: 048
  4. AMIODARONE [Concomitant]
     Dosage: 7 DAYS
  5. PRADAXA [Concomitant]
  6. MAGNERICH [Concomitant]
  7. ATORVASTATIN [Concomitant]
  8. SIOFOR [Concomitant]
  9. RYTHMONORM [Concomitant]
     Dates: start: 20130929

REACTIONS (4)
  - Condition aggravated [Recovering/Resolving]
  - Hypertension [Unknown]
  - Headache [Unknown]
  - Drug ineffective [Unknown]
